FAERS Safety Report 8275771-7 (Version None)
Quarter: 2012Q2

REPORT INFORMATION
  Report Type: 
  Country: None (occurrence: None)
  Receive Date: 20120410
  Receipt Date: 20120410
  Transmission Date: 20120825
  Serious: Yes (Life-Threatening, Hospitalization)
  Sender: FDA-Public Use
  Company Number: None

PATIENT
  Age: 84 Year
  Sex: Male
  Weight: 78.3 kg

DRUGS (2)
  1. GOSERELIN ACETATE [Suspect]
     Indication: PROSTATE CANCER
     Dosage: 10.8 MG OTHER SQ
     Route: 058
  2. LEUPROLIDE ACETATE [Suspect]
     Indication: PROSTATE CANCER
     Dosage: 45 MG OTHER SQ
     Route: 058
     Dates: start: 20120111, end: 20120111

REACTIONS (2)
  - PULMONARY EMBOLISM [None]
  - DEEP VEIN THROMBOSIS [None]
